FAERS Safety Report 6440107-0 (Version None)
Quarter: 2009Q4

REPORT INFORMATION
  Report Type: 
  Country: None (occurrence: None)
  Receive Date: 20091113
  Receipt Date: 20081111
  Transmission Date: 20100525
  Serious: No
  Sender: FDA-Public Use
  Company Number: A0755981A

PATIENT
  Age: 48 Year
  Sex: Male

DRUGS (3)
  1. COREG [Suspect]
     Indication: LEFT VENTRICULAR DYSFUNCTION
     Dosage: 80MG PER DAY
     Route: 048
     Dates: start: 20070601
  2. COUMADIN [Concomitant]
  3. COZAAR [Concomitant]

REACTIONS (1)
  - FATIGUE [None]
